FAERS Safety Report 17093023 (Version 1)
Quarter: 2019Q4

REPORT INFORMATION
  Report Type: Spontaneous
  Country: EG (occurrence: US)
  Receive Date: 20191128
  Receipt Date: 20191128
  Transmission Date: 20200122
  Serious: No
  Sender: FDA-Public Use
  Company Number: None

PATIENT
  Age: 7 Year
  Sex: Female
  Weight: 24 kg

DRUGS (5)
  1. OMRON NEBULIZER [DEVICE] [Suspect]
     Active Substance: DEVICE
  2. SALBUTAMOL [Suspect]
     Active Substance: ALBUTEROL
  3. PREDNISOLON [Concomitant]
     Active Substance: PREDNISOLONE
  4. SERETIDE [Concomitant]
     Active Substance: FLUTICASONE PROPIONATE\SALMETEROL XINAFOATE
  5. SALBUTAMOL [Concomitant]
     Active Substance: ALBUTEROL

REACTIONS (1)
  - Muscle spasms [None]

NARRATIVE: CASE EVENT DATE: 20191120
